FAERS Safety Report 4594811-X (Version None)
Quarter: 2005Q1

REPORT INFORMATION
  Report Type: 
  Country: None (occurrence: None)
  Receive Date: 20050223
  Receipt Date: 20050208
  Transmission Date: 20050727
  Serious: Yes (Life-Threatening, Disabling)
  Sender: FDA-Public Use
  Company Number: 2005S1000053

PATIENT
  Age: 71 Year
  Sex: Male
  Weight: 70 kg

DRUGS (1)
  1. ACITRETIN                               (ACITRETIN) [Suspect]
     Indication: PSORIASIS
     Dosage: 25 MG; QD; PO
     Route: 048

REACTIONS (1)
  - CEREBRAL INFARCTION [None]
